FAERS Safety Report 6163614-7 (Version None)
Quarter: 2009Q2

REPORT INFORMATION
  Report Type: 
  Country: None (occurrence: None)
  Receive Date: 20090422
  Receipt Date: 20090414
  Transmission Date: 20091009
  Serious: Yes (Hospitalization)
  Sender: FDA-Public Use
  Company Number: AR-ROCHE-627777

PATIENT
  Sex: Male

DRUGS (4)
  1. MIRCERA [Suspect]
     Indication: MYELOFIBROSIS
     Route: 058
     Dates: start: 20090114
  2. MIRCERA [Suspect]
     Route: 058
     Dates: start: 20090129
  3. MIRCERA [Suspect]
     Route: 058
     Dates: start: 20090227
  4. MIRCERA [Suspect]
     Route: 058
     Dates: start: 20090328, end: 20090328

REACTIONS (6)
  - ANAEMIA [None]
  - CARDIAC FAILURE [None]
  - HYPOTENSION [None]
  - OEDEMA PERIPHERAL [None]
  - PLEURAL EFFUSION [None]
  - RENAL FAILURE [None]
